FAERS Safety Report 17158380 (Version 1)
Quarter: 2019Q4

REPORT INFORMATION
  Report Type: Spontaneous
  Country: US (occurrence: US)
  Receive Date: 20191213
  Receipt Date: 20191213
  Transmission Date: 20200122
  Serious: Yes (Hospitalization)
  Sender: FDA-Public Use
  Company Number: None

PATIENT
  Age: 81 Year
  Sex: Male
  Weight: 63.6 kg

DRUGS (7)
  1. ASPIRIN. [Suspect]
     Active Substance: ASPIRIN
     Indication: MYOCARDIAL INFARCTION
     Route: 048
     Dates: start: 20120921
  2. FUROSEMIDE 40MG BID [Concomitant]
  3. LOSARTAN 100MG DAILY [Concomitant]
  4. METFORMIN 500MG BID [Concomitant]
  5. RIVAROXABAN [Suspect]
     Active Substance: RIVAROXABAN
     Indication: ATRIAL FIBRILLATION
     Route: 048
     Dates: start: 20141208
  6. CARVEDILOL 6.25MG BID [Concomitant]
  7. SITAGLIPTIN 100MG DAILY [Concomitant]

REACTIONS (7)
  - Barrett^s oesophagus [None]
  - Hiatus hernia [None]
  - Gastrointestinal haemorrhage [None]
  - Dizziness [None]
  - Dyspnoea [None]
  - Abdominal pain [None]
  - Palpitations [None]

NARRATIVE: CASE EVENT DATE: 20150912
